FAERS Safety Report 16037046 (Version 1)
Quarter: 2019Q1

REPORT INFORMATION
  Report Type: Report from Study
  Country: US (occurrence: US)
  Receive Date: 20190305
  Receipt Date: 20190305
  Transmission Date: 20190418
  Serious: No
  Sender: FDA-Public Use
  Company Number: US-ALEXION PHARMACEUTICALS INC.-A201903207

PATIENT
  Sex: Female

DRUGS (1)
  1. SOLIRIS [Suspect]
     Active Substance: ECULIZUMAB
     Indication: ATYPICAL HAEMOLYTIC URAEMIC SYNDROME
     Route: 065

REACTIONS (11)
  - Platelet count decreased [Unknown]
  - Protein total decreased [Unknown]
  - Blood creatinine increased [Unknown]
  - Glomerular filtration rate decreased [Unknown]
  - Anion gap decreased [Unknown]
  - Haematocrit decreased [Unknown]
  - Blood lactate dehydrogenase increased [Unknown]
  - Blood sodium decreased [Unknown]
  - Blood urea increased [Unknown]
  - Blood albumin decreased [Unknown]
  - Blood phosphorus increased [Unknown]
